FAERS Safety Report 20950248 (Version 1)
Quarter: 2022Q2

REPORT INFORMATION
  Report Type: Spontaneous
  Country: US (occurrence: US)
  Receive Date: 20220613
  Receipt Date: 20220613
  Transmission Date: 20220720
  Serious: Yes (Other)
  Sender: FDA-Public Use
  Company Number: US-STRIDES ARCOLAB LIMITED-2021SP026250

PATIENT
  Age: 6 Year
  Sex: Male

DRUGS (5)
  1. HYDROCORTISONE [Suspect]
     Active Substance: HYDROCORTISONE
     Indication: Eczema
     Dosage: UNK, LOW-POTENCY
     Route: 065
  2. BUDESONIDE [Suspect]
     Active Substance: BUDESONIDE
     Indication: Eosinophilic oesophagitis
     Dosage: 750 MICROGRAM, DAILY
     Route: 048
  3. FLUTICASONE [Suspect]
     Active Substance: FLUTICASONE
     Indication: Asthma
     Dosage: 110 MILLIGRAM PER DECILITRE, ONE PUFF TWICE DAILY
  4. FLUTICASONE [Suspect]
     Active Substance: FLUTICASONE
     Dosage: 55 MILLIGRAM PER DECILITRE, DOSE WAS DECREASED BY 50% TO 55 MG/DL TWICE DAILY
  5. TRIAMCINOLONE [Suspect]
     Active Substance: TRIAMCINOLONE
     Indication: Eczema
     Dosage: UNK, TWICE DAILY
     Route: 061

REACTIONS (1)
  - Adrenal insufficiency [Not Recovered/Not Resolved]
